FAERS Safety Report 19914404 (Version 1)
Quarter: 2021Q4

REPORT INFORMATION
  Report Type: Spontaneous
  Country: IT (occurrence: IT)
  Receive Date: 20211005
  Receipt Date: 20211005
  Transmission Date: 20220303
  Serious: Yes (Hospitalization, Other)
  Sender: FDA-Public Use
  Company Number: IT-SUN PHARMACEUTICAL INDUSTRIES LTD-2021R1-312727

PATIENT
  Age: 60 Year
  Sex: Male

DRUGS (2)
  1. CARBOPLATIN [Suspect]
     Active Substance: CARBOPLATIN
     Indication: Small cell lung cancer
     Dosage: UNK
     Route: 065
     Dates: start: 2020, end: 202011
  2. PEMETREXED [Suspect]
     Active Substance: PEMETREXED
     Indication: Small cell lung cancer
     Dosage: UNK
     Route: 065
     Dates: start: 2020, end: 202011

REACTIONS (1)
  - Deep vein thrombosis [Unknown]
